FAERS Safety Report 21060671 (Version 2)
Quarter: 2022Q3

REPORT INFORMATION
  Report Type: Report from Study
  Country: PL (occurrence: None)
  Receive Date: 20220708
  Receipt Date: 20220712
  Transmission Date: 20221027
  Serious: Yes (Death)
  Sender: FDA-Public Use
  Company Number: PL-ROCHE-3134588

PATIENT
  Age: 83 Year
  Sex: Male
  Weight: 68.5 kg

DRUGS (10)
  1. PLACEBO [Suspect]
     Active Substance: UNSPECIFIED INGREDIENT
     Indication: Squamous cell carcinoma of head and neck
     Dosage: DATE OF MOST RECENT DOSE OF BLINDED TIRAGOLUMAB PRIOR TO AE AND SAE ONSET: 27/APR/2022
     Route: 042
     Dates: start: 20220317
  2. ATEZOLIZUMAB [Suspect]
     Active Substance: ATEZOLIZUMAB
     Indication: Squamous cell carcinoma of head and neck
     Dosage: DATE OF MOST RECENT DOSE OF ATEZOLIZUMAB (1200 MG) PRIOR TO AE AND SAE ONSET:27/APR/2022
     Route: 041
     Dates: start: 20220317
  3. EUTHYROX [Concomitant]
     Active Substance: LEVOTHYROXINE SODIUM
     Indication: Hypothyroidism
     Route: 048
     Dates: start: 20220406
  4. NILOGRIN [Concomitant]
     Indication: Arteriosclerosis
  5. SETAL MR [Concomitant]
     Indication: Coronary artery disease
  6. ACARD [Concomitant]
     Indication: Coronary artery disease
  7. PERINDOPRIL [Concomitant]
     Active Substance: PERINDOPRIL
     Indication: Hypertension
  8. TAMSULOSIN HYDROCHLORIDE [Concomitant]
     Active Substance: TAMSULOSIN HYDROCHLORIDE
     Indication: Benign prostatic hyperplasia
  9. ACETAMINOPHEN [Concomitant]
     Active Substance: ACETAMINOPHEN
     Dates: start: 20220527
  10. PYRALGIN (POLAND) [Concomitant]
     Dates: start: 20220527

REACTIONS (1)
  - Death [Fatal]

NARRATIVE: CASE EVENT DATE: 20220704
